FAERS Safety Report 10005381 (Version 2)
Quarter: 2014Q1

REPORT INFORMATION
  Report Type: Spontaneous
  Country: US (occurrence: US)
  Receive Date: 20140312
  Receipt Date: 20140328
  Transmission Date: 20141002
  Serious: No
  Sender: FDA-Public Use
  Company Number: US-RB-064355-14

PATIENT
  Age: 55 Year
  Sex: Female

DRUGS (5)
  1. SUBOXONE FILM [Suspect]
     Indication: DRUG DEPENDENCE
     Dosage: SUBOXONE FILM; TAKING 2.5 STRIPS DAILY
     Route: 060
     Dates: start: 2011
  2. SUBOXONE FILM [Suspect]
     Indication: DRUG DEPENDENCE
     Dosage: SUBOXONE FILM; TAKING 2.5 STRIPS DAILY
     Route: 060
     Dates: start: 2011
  3. STOOL SOFTENER [Concomitant]
     Indication: CONSTIPATION
     Dosage: 1 TABLET OF UNSPECIFIED STRENGTH TAKEN AS NEEDED
     Route: 048
     Dates: start: 1999
  4. NEURONTIN [Concomitant]
     Indication: FIBROMYALGIA
     Dosage: UNKNOWN DAILY DOSING
     Route: 048
     Dates: start: 2004
  5. LEXAPRO [Concomitant]
     Indication: DEPRESSION
     Dosage: UNKNOWN DAILY DOSING
     Route: 048
     Dates: start: 2004

REACTIONS (1)
  - Wrong technique in drug usage process [Not Recovered/Not Resolved]
